APPROVED DRUG PRODUCT: CHOLESTYRAMINE LIGHT
Active Ingredient: CHOLESTYRAMINE
Strength: EQ 4GM RESIN/SCOOPFUL
Dosage Form/Route: POWDER;ORAL
Application: A074348 | Product #002
Applicant: TEVA PHARMACEUTICALS USA INC
Approved: May 28, 1998 | RLD: No | RS: No | Type: DISCN